FAERS Safety Report 9995062 (Version 1)
Quarter: 2014Q1

REPORT INFORMATION
  Report Type: Spontaneous
  Country: US (occurrence: None)
  Receive Date: 20140218
  Receipt Date: 20140218
  Transmission Date: 20141002
  Serious: No
  Sender: FDA-Public Use
  Company Number: 1000050805

PATIENT
  Age: 39 Year
  Sex: Female

DRUGS (4)
  1. VIIBRYD [Suspect]
     Indication: DEPRESSION
     Route: 048
     Dates: start: 201205, end: 2012
  2. VIIBRYD [Suspect]
     Indication: ANXIETY
     Route: 048
     Dates: start: 201205, end: 2012
  3. MOTRIN (IBUPROFEN) (IBUPROFEN) [Concomitant]
  4. TRAMADOL (TRAMADOL) (TRAMADOL) [Concomitant]

REACTIONS (1)
  - Drug screen false positive [None]
